FAERS Safety Report 21543640 (Version 4)
Quarter: 2023Q1

REPORT INFORMATION
  Report Type: Spontaneous
  Country: PT (occurrence: PT)
  Receive Date: 20221102
  Receipt Date: 20230221
  Transmission Date: 20230417
  Serious: Yes (Life-Threatening, Hospitalization, Other)
  Sender: FDA-Public Use
  Company Number: PT-GLAXOSMITHKLINE-PT2022GSK156430

PATIENT
  Age: 23 Year
  Sex: Female

DRUGS (3)
  1. DICLOFENAC SODIUM [Suspect]
     Active Substance: DICLOFENAC SODIUM
     Indication: Product used for unknown indication
     Dosage: UNK
     Route: 065
  2. METAMIZOLE [Suspect]
     Active Substance: METAMIZOLE
     Indication: Product used for unknown indication
     Dosage: UNK
     Route: 065
  3. ETORICOXIB [Suspect]
     Active Substance: ETORICOXIB
     Indication: Product used for unknown indication
     Dosage: UNK
     Route: 065

REACTIONS (15)
  - Toxic epidermal necrolysis [Recovered/Resolved]
  - Multiple organ dysfunction syndrome [Recovered/Resolved]
  - Hepatic function abnormal [Recovered/Resolved]
  - Blood disorder [Recovered/Resolved]
  - Cardiac dysfunction [Recovered/Resolved]
  - Renal impairment [Recovered/Resolved]
  - Gastrointestinal disorder [Recovered/Resolved]
  - Pyrexia [Unknown]
  - Peri-implantitis [Unknown]
  - Noninfective conjunctivitis [Unknown]
  - Condition aggravated [Unknown]
  - Rash maculo-papular [Unknown]
  - Stomatitis [Unknown]
  - Nikolsky^s sign [Unknown]
  - Respiratory tract oedema [Unknown]
